FAERS Safety Report 23527588 (Version 1)
Quarter: 2024Q1

REPORT INFORMATION
  Report Type: Report from Study
  Country: FR (occurrence: FR)
  Receive Date: 20240215
  Receipt Date: 20240215
  Transmission Date: 20240410
  Serious: Yes (Life-Threatening, Hospitalization, Other)
  Sender: FDA-Public Use
  Company Number: None

PATIENT
  Age: 49 Year
  Sex: Female
  Weight: 67 kg

DRUGS (30)
  1. TRAMADOL HYDROCHLORIDE [Suspect]
     Active Substance: TRAMADOL HYDROCHLORIDE
     Indication: Product used for unknown indication
     Dosage: TIME INTERVAL: TOTAL: TOPALGIC EXTENDED-RELEASE TABLETS 60 TABLETS
     Route: 048
     Dates: start: 20160109, end: 20160109
  2. TRAMADOL HYDROCHLORIDE [Suspect]
     Active Substance: TRAMADOL HYDROCHLORIDE
     Indication: Product used for unknown indication
     Dosage: 100 MG, 2/DAY
     Route: 048
  3. ESOMEPRAZOLE MAGNESIUM [Concomitant]
     Active Substance: ESOMEPRAZOLE\ESOMEPRAZOLE MAGNESIUM\ESOMEPRAZOLE MAGNESIUM DIHYDRATE
     Indication: Product used for unknown indication
     Dosage: DOSAGE FORM: UNSPECIFIED
  4. ARAVA [Concomitant]
     Active Substance: LEFLUNOMIDE
     Indication: Product used for unknown indication
     Route: 065
  5. POLYETHYLENE GLYCOL 4000 [Concomitant]
     Active Substance: POLYETHYLENE GLYCOL 4000
     Indication: Product used for unknown indication
     Dosage: TIME INTERVAL: AS NECESSARY: 10 G, AS NEEDED
     Route: 048
  6. THIOCOLCHICOSIDE [Suspect]
     Active Substance: THIOCOLCHICOSIDE
     Indication: Product used for unknown indication
     Dosage: 40 MG, 3/DAY 12 CAPSULES
     Route: 048
  7. THIOCOLCHICOSIDE [Suspect]
     Active Substance: THIOCOLCHICOSIDE
     Indication: Product used for unknown indication
     Dosage: TIME INTERVAL: TOTAL: 12 DF, ONCE
     Route: 048
     Dates: start: 20160109, end: 20160109
  8. STELARA [Suspect]
     Active Substance: USTEKINUMAB
     Indication: Psoriasis
     Route: 058
     Dates: start: 201506, end: 20160109
  9. STELARA [Suspect]
     Active Substance: USTEKINUMAB
     Indication: Psoriasis
     Route: 058
     Dates: start: 20150226, end: 201506
  10. LEVOTHYROXINE [Suspect]
     Active Substance: LEVOTHYROXINE\LEVOTHYROXINE SODIUM
     Indication: Product used for unknown indication
     Route: 065
     Dates: start: 20160127
  11. LEVOTHYROXINE [Suspect]
     Active Substance: LEVOTHYROXINE\LEVOTHYROXINE SODIUM
     Indication: Product used for unknown indication
     Dosage: TIME INTERVAL: TOTAL
     Route: 065
     Dates: start: 20160109, end: 20160109
  12. ARCOXIA [Suspect]
     Active Substance: ETORICOXIB
     Indication: Product used for unknown indication
     Route: 065
  13. ARCOXIA [Suspect]
     Active Substance: ETORICOXIB
     Indication: Product used for unknown indication
     Route: 065
     Dates: start: 20160109, end: 20160109
  14. ACETAMINOPHEN [Concomitant]
     Active Substance: ACETAMINOPHEN
     Indication: Pain
     Dosage: 1 G, IF VISUAL ANALOG SCALE (VAS) HIGHER THAN AT 4.1
     Route: 065
  15. SACOLENE [Concomitant]
     Indication: Product used for unknown indication
     Dosage: DOSAGE FORM: UNSPECIFIED, AS REQUIRED
  16. MONTMORILLONITE [Concomitant]
     Active Substance: MONTMORILLONITE
     Indication: Product used for unknown indication
     Dosage: DOSAGE FORM: UNSPECIFIED
     Route: 065
  17. LYRICA [Suspect]
     Active Substance: PREGABALIN
     Indication: Product used for unknown indication
     Dosage: 56 TABLETS
     Route: 048
     Dates: start: 20160109, end: 20160109
  18. LYRICA [Suspect]
     Active Substance: PREGABALIN
     Indication: Product used for unknown indication
     Route: 048
  19. ACETAMINOPHEN [Concomitant]
     Active Substance: ACETAMINOPHEN
     Indication: Product used for unknown indication
     Dosage: DOSAGE FORM: UNSPECIFIED
     Route: 065
  20. RACECADOTRIL [Concomitant]
     Active Substance: RACECADOTRIL
     Indication: Product used for unknown indication
     Dosage: DOSAGE FORM: UNSPECIFIED, AS REQUIRED
  21. CYAMEMAZINE [Suspect]
     Active Substance: CYAMEMAZINE
     Indication: Product used for unknown indication
     Dosage: TIME INTERVAL: TOTAL: 150 TABLETS
     Route: 048
     Dates: start: 20160109, end: 20160109
  22. CYAMEMAZINE [Suspect]
     Active Substance: CYAMEMAZINE
     Indication: Product used for unknown indication
     Dosage: 12.5 MG, 1/DAY
     Route: 048
  23. URAPIDIL [Concomitant]
     Active Substance: URAPIDIL
     Indication: Product used for unknown indication
     Dosage: 30 MG, 3 TIMES DAILY IF REQUIRED, IF BLOOD PRESSURE HIGHER THAN 120/70 MMHG
  24. ENOXAPARIN SODIUM [Concomitant]
     Active Substance: ENOXAPARIN SODIUM
     Indication: Product used for unknown indication
     Dosage: TIME INTERVAL: TOTAL: 0.4 ML, ONCE
     Route: 065
  25. ZOCOR [Concomitant]
     Active Substance: SIMVASTATIN
     Indication: Product used for unknown indication
     Dosage: 20 MG, 1/DAY
     Route: 048
  26. MOBIC [Suspect]
     Active Substance: MELOXICAM
     Indication: Product used for unknown indication
     Dosage: 28 TABLETS
     Route: 065
  27. MOBIC [Suspect]
     Active Substance: MELOXICAM
     Indication: Product used for unknown indication
     Dosage: TIME INTERVAL: TOTAL: 28 TABLETS
     Route: 065
     Dates: start: 20160109, end: 20160109
  28. POTASSIUM CHLORIDE [Suspect]
     Active Substance: POTASSIUM CHLORIDE
     Indication: Product used for unknown indication
     Route: 065
  29. POTASSIUM CHLORIDE [Suspect]
     Active Substance: POTASSIUM CHLORIDE
     Indication: Product used for unknown indication
     Route: 065
     Dates: start: 20160109, end: 20160109
  30. ESOMEPRAZOLE [Concomitant]
     Active Substance: ESOMEPRAZOLE
     Indication: Product used for unknown indication
     Route: 048

REACTIONS (18)
  - Cardio-respiratory arrest [Recovered/Resolved]
  - Lung disorder [Recovered/Resolved]
  - Coma [Recovered/Resolved]
  - Respiratory acidosis [Recovered/Resolved]
  - Anaemia [Unknown]
  - Thrombocytosis [Not Recovered/Not Resolved]
  - Pneumonia haemophilus [Recovered/Resolved]
  - Amnesia [Unknown]
  - Dysphonia [Unknown]
  - Pneumonia staphylococcal [Recovered/Resolved]
  - Lung disorder [Recovered/Resolved]
  - Suicide attempt [Recovered/Resolved]
  - Hepatic cytolysis [Recovered/Resolved]
  - Toxicity to various agents [Recovered/Resolved]
  - Intentional overdose [Recovered/Resolved]
  - Pneumonia [Recovered/Resolved]
  - Toxic encephalopathy [Unknown]
  - Acute respiratory distress syndrome [Recovered/Resolved]

NARRATIVE: CASE EVENT DATE: 20160101
